FAERS Safety Report 21720513 (Version 2)
Quarter: 2022Q4

REPORT INFORMATION
  Report Type: Spontaneous
  Country: JP (occurrence: JP)
  Receive Date: 20221213
  Receipt Date: 20221219
  Transmission Date: 20230112
  Serious: Yes (Other)
  Sender: FDA-Public Use
  Company Number: JP-002147023-NVSJ2022JP275800

PATIENT
  Age: 7 Month

DRUGS (2)
  1. CYCLOSPORINE [Suspect]
     Active Substance: CYCLOSPORINE
     Indication: Kawasaki^s disease
     Dosage: UNK
     Route: 065
  2. GLOBULIN [Concomitant]
     Indication: Kawasaki^s disease
     Route: 065

REACTIONS (2)
  - Pancreatitis acute [Recovering/Resolving]
  - Product use in unapproved indication [Unknown]
